FAERS Safety Report 9797806 (Version 1)
Quarter: 2014Q1

REPORT INFORMATION
  Report Type: Spontaneous
  Country: US (occurrence: US)
  Receive Date: 20140106
  Receipt Date: 20140106
  Transmission Date: 20141002
  Serious: Yes (Hospitalization)
  Sender: FDA-Public Use
  Company Number: US-SA-2014SA000490

PATIENT
  Age: 62 Year
  Sex: Male
  Weight: 109.1 kg

DRUGS (2)
  1. HECTOROL [Suspect]
     Indication: HYPERPARATHYROIDISM SECONDARY
     Route: 042
     Dates: start: 20131219
  2. HEPARIN SODIUM [Concomitant]
     Dosage: 3000 UNITS PER TREATMENT DOSE:3000 UNIT(S)

REACTIONS (2)
  - Cardio-respiratory arrest [Recovered/Resolved]
  - Heart rate decreased [Recovered/Resolved]
